FAERS Safety Report 8348953-3 (Version None)
Quarter: 2012Q2

REPORT INFORMATION
  Report Type: 
  Country: None (occurrence: None)
  Receive Date: 20120508
  Receipt Date: 20120427
  Transmission Date: 20120825
  Serious: Yes (Other)
  Sender: FDA-Public Use
  Company Number: 2012SP022501

PATIENT
  Age: 61 Year
  Sex: Female
  Weight: 53 kg

DRUGS (13)
  1. PEGINTERFERON ALFA-2B [Suspect]
     Indication: HEPATITIS C
     Dosage: 0.76 MCG/KG;QW;SC ; 0.76 MCG/KG;QW;SC
     Route: 058
     Dates: start: 20120328, end: 20120328
  2. PEGINTERFERON ALFA-2B [Suspect]
     Indication: HEPATITIS C
     Dosage: 0.76 MCG/KG;QW;SC ; 0.76 MCG/KG;QW;SC
     Route: 058
     Dates: start: 20120229, end: 20120229
  3. REBETOL [Suspect]
     Indication: HEPATITIS C
     Dosage: 400 MG;QD;PO ; 400 MG;QD;PO
     Route: 048
     Dates: start: 20120229, end: 20120306
  4. REBETOL [Suspect]
     Indication: HEPATITIS C
     Dosage: 400 MG;QD;PO ; 400 MG;QD;PO
     Route: 048
     Dates: start: 20120328, end: 20120331
  5. PREDNISOLONE [Concomitant]
  6. TELAVIC (ANTIVIRALS NOS) (1500 MG) [Suspect]
     Indication: HEPATITIS C
     Dosage: 1500 MG;QD;PO ; 750 MG;QD;PO
     Route: 048
     Dates: start: 20120306, end: 20120306
  7. TELAVIC (ANTIVIRALS NOS) (1500 MG) [Suspect]
     Indication: HEPATITIS C
     Dosage: 1500 MG;QD;PO ; 750 MG;QD;PO
     Route: 048
     Dates: start: 20120328, end: 20120331
  8. ADALAT CC [Concomitant]
  9. VITAMIN B12 [Concomitant]
  10. URSO 250 [Concomitant]
  11. PRAVASTATIN SODIUM [Concomitant]
  12. FUROSEMIDE [Concomitant]
  13. XYZAL [Concomitant]

REACTIONS (3)
  - RASH [None]
  - PLEURAL EFFUSION [None]
  - ASCITES [None]
